FAERS Safety Report 7013967-2 (Version None)
Quarter: 2010Q3

REPORT INFORMATION
  Report Type: 
  Country: None (occurrence: None)
  Receive Date: 20100925
  Receipt Date: 20100920
  Transmission Date: 20110219
  Serious: Yes (Other)
  Sender: FDA-Public Use
  Company Number: IE-AMGEN-US427072

PATIENT
  Sex: Female
  Weight: 98.5 kg

DRUGS (4)
  1. ENBREL [Suspect]
     Indication: RHEUMATOID ARTHRITIS
     Route: 058
     Dates: start: 20100126, end: 20100807
  2. FLAGYL [Concomitant]
     Dates: start: 20100202
  3. PROTIUM [Concomitant]
     Dates: start: 20100209
  4. AUGMENTIN '125' [Concomitant]
     Dosage: 500/125 MG TABLET TWICE DAILY
     Dates: start: 20100202

REACTIONS (1)
  - LOW DENSITY LIPOPROTEIN INCREASED [None]
